FAERS Safety Report 8579208-X (Version None)
Quarter: 2012Q3

REPORT INFORMATION
  Report Type: 
  Country: None (occurrence: None)
  Receive Date: 20120808
  Receipt Date: 20120730
  Transmission Date: 20120928
  Serious: Yes (Death)
  Sender: FDA-Public Use
  Company Number: HU-ROCHE-1095000

PATIENT
  Sex: Male

DRUGS (9)
  1. TRAMADOL HCL [Concomitant]
  2. VITAMIN D [Concomitant]
  3. CITROKALCIUM [Concomitant]
  4. METOTREXAT [Concomitant]
  5. BISOPROLOL FUMARATE [Concomitant]
  6. HUMA-FOLACID [Concomitant]
     Route: 048
  7. POTASSIUM CHLORIDE [Concomitant]
     Route: 048
  8. ACTEMRA [Suspect]
     Indication: RHEUMATOID ARTHRITIS
     Dosage: LAST INFUSION: 18/JUN/2012
     Route: 041
  9. MEDROL [Concomitant]

REACTIONS (2)
  - CIRCULATORY COLLAPSE [None]
  - RESPIRATORY FAILURE [None]
